FAERS Safety Report 9727729 (Version 1)
Quarter: 2013Q4

REPORT INFORMATION
  Report Type: Spontaneous
  Country: US (occurrence: US)
  Receive Date: 20131203
  Receipt Date: 20131203
  Transmission Date: 20140711
  Serious: No
  Sender: FDA-Public Use
  Company Number: US-ENDO PHARMACEUTICALS INC.-AMIT20120004

PATIENT
  Age: 59 Year
  Sex: Female

DRUGS (4)
  1. AMITRIPTYLINE HCL [Suspect]
     Indication: DEPRESSION
     Route: 048
  2. AMITRIPTYLINE HCL [Suspect]
     Indication: INSOMNIA
     Route: 048
  3. THYROID [Concomitant]
     Indication: THYROID DISORDER
     Route: 065
  4. VITAMIN D [Concomitant]
     Indication: VITAMIN D DEFICIENCY

REACTIONS (1)
  - Drug effect decreased [Unknown]
